FAERS Safety Report 4433563-0 (Version None)
Quarter: 2004Q3

REPORT INFORMATION
  Report Type: 
  Country: None (occurrence: None)
  Receive Date: 20040824
  Receipt Date: 20040817
  Transmission Date: 20050211
  Serious: Yes (Disabling)
  Sender: FDA-Public Use
  Company Number: GBWYE913319JUL04

PATIENT
  Age: 46 Year
  Sex: Male

DRUGS (4)
  1. EFFEXOR [Suspect]
     Indication: DEPRESSION
     Dosage: 75 MG 1X PER 1 DAY, ORAL;150 MG 1X PER 1 DAY, ORAL;150 MG 1X PER 1 DAY,ORAL
     Route: 048
     Dates: end: 20020101
  2. EFFEXOR [Suspect]
     Indication: DEPRESSION
     Dosage: 75 MG 1X PER 1 DAY, ORAL;150 MG 1X PER 1 DAY, ORAL;150 MG 1X PER 1 DAY,ORAL
     Route: 048
     Dates: start: 19990901
  3. EFFEXOR [Suspect]
     Indication: DEPRESSION
     Dosage: 75 MG 1X PER 1 DAY, ORAL;150 MG 1X PER 1 DAY, ORAL;150 MG 1X PER 1 DAY,ORAL
     Route: 048
     Dates: start: 20020101
  4. CITALOPRAM [Concomitant]

REACTIONS (1)
  - RHEUMATOID ARTHRITIS [None]
